FAERS Safety Report 18198078 (Version 2)
Quarter: 2020Q4

REPORT INFORMATION
  Report Type: Spontaneous
  Country: FR (occurrence: FR)
  Receive Date: 20200826
  Receipt Date: 20201014
  Transmission Date: 20210113
  Serious: Yes (Other)
  Sender: FDA-Public Use
  Company Number: FR-BAUSCH-BL-2020-024177

PATIENT
  Age: 82 Year
  Sex: Female
  Weight: 67 kg

DRUGS (23)
  1. SERESTA [Concomitant]
     Active Substance: OXAZEPAM
     Indication: INSOMNIA
     Dosage: 15 MILLIGRAM
     Route: 048
  2. DIFFU K [Concomitant]
     Active Substance: POTASSIUM CHLORIDE
     Indication: HYPOKALAEMIA
     Route: 048
  3. LERCAN [Concomitant]
     Active Substance: LERCANIDIPINE
     Indication: HYPERTENSION
     Dosage: 20 MILLIGRAM
     Route: 048
  4. MELATONIN [Concomitant]
     Active Substance: MELATONIN
     Indication: SLEEP DISORDER
     Dosage: 3 MILLIGRAM
     Route: 048
  5. FUROSEMIDE. [Concomitant]
     Active Substance: FUROSEMIDE
     Indication: CARDIAC FAILURE
     Dosage: 40 MILLIGRAM
     Route: 048
  6. TIORFAN [Concomitant]
     Active Substance: RACECADOTRIL
     Indication: DIARRHOEA
     Dosage: 100 MILLIGRAM
     Route: 048
  7. GRANOCYTE [Concomitant]
     Active Substance: LENOGRASTIM
     Indication: NEUTROPENIA
     Dosage: 34000 IU
     Route: 058
  8. QUESTRAN [Concomitant]
     Active Substance: CHOLESTYRAMINE
     Indication: DIARRHOEA
     Dosage: 4 GRAM
     Route: 048
  9. NIVESTIM [Concomitant]
     Active Substance: FILGRASTIM
     Indication: NEUTROPENIA
     Dosage: 30 IU
     Route: 058
  10. CO RENITEC [Concomitant]
     Active Substance: ENALAPRIL MALEATE\HYDROCHLOROTHIAZIDE
     Indication: HYPERTENSION
     Dosage: 20 MILLIGRAM
     Route: 048
  11. ATENOLOL. [Concomitant]
     Active Substance: ATENOLOL
     Indication: ARRHYTHMIA
     Route: 048
  12. VASERETIC [Concomitant]
     Active Substance: ENALAPRIL MALEATE\HYDROCHLOROTHIAZIDE
     Indication: HYPERTENSION
     Route: 065
  13. TRIATEC [HYDROCHLOROTHIAZIDE/RAMIPRIL] [Concomitant]
     Active Substance: HYDROCHLOROTHIAZIDE\RAMIPRIL
     Indication: CARDIAC FAILURE
     Dosage: 1.25 MILLIGRAM
     Route: 048
  14. CARDENSIEL [Concomitant]
     Active Substance: BISOPROLOL FUMARATE
     Indication: CARDIAC FAILURE
     Dosage: 2.5 MILLIGRAM
     Route: 048
  15. LEXOMIL [Concomitant]
     Active Substance: BROMAZEPAM
     Indication: ANAEMIA
     Dosage: 25 MILLIGRAM
     Route: 048
  16. METOCLOPRAMIDE. [Concomitant]
     Active Substance: METOCLOPRAMIDE
     Indication: NAUSEA
     Route: 048
  17. DOLIPRANE [Concomitant]
     Active Substance: ACETAMINOPHEN
     Indication: INTERNAL FIXATION OF FRACTURE
     Dosage: 1 GRAM
  18. DEXAMETHASONE. [Suspect]
     Active Substance: DEXAMETHASONE
     Indication: PLASMA CELL MYELOMA
     Dosage: DAY 1 (SINCE C7)
     Route: 065
     Dates: start: 20161021, end: 20200731
  19. LENALIDOMIDE [Suspect]
     Active Substance: LENALIDOMIDE
     Indication: PLASMA CELL MYELOMA
     Dosage: 25 MILLIGRAM
     Route: 048
     Dates: start: 20161021, end: 20191219
  20. BACTRIM [Concomitant]
     Active Substance: SULFAMETHOXAZOLE\TRIMETHOPRIM
     Indication: INFECTION PROPHYLAXIS
     Route: 065
  21. STILNOX [Concomitant]
     Active Substance: ZOLPIDEM TARTRATE
     Indication: INSOMNIA
     Dosage: 10 MILLIGRAM
     Route: 048
  22. AMOXICILLIN. [Concomitant]
     Active Substance: AMOXICILLIN
     Indication: INFECTION PROPHYLAXIS
     Dosage: 500 MILLIGRAM
     Route: 048
  23. DARATUMUMAB [Concomitant]
     Active Substance: DARATUMUMAB
     Indication: PLASMA CELL MYELOMA
     Dosage: 16 MILLIGRAM/KILOGRAM INTRAVENOUS INFUSION
     Route: 041
     Dates: start: 20161021, end: 20200731

REACTIONS (3)
  - Bowen^s disease [Recovered/Resolved]
  - Squamous cell carcinoma of skin [Recovered/Resolved]
  - Basal cell carcinoma [Recovered/Resolved]

NARRATIVE: CASE EVENT DATE: 20200521
